FAERS Safety Report 21254136 (Version 5)
Quarter: 2023Q1

REPORT INFORMATION
  Report Type: Report from Study
  Country: CN (occurrence: CN)
  Receive Date: 20220825
  Receipt Date: 20230123
  Transmission Date: 20230418
  Serious: Yes (Hospitalization)
  Sender: FDA-Public Use
  Company Number: CN-GLAXOSMITHKLINE-CN2022GSK120913

PATIENT

DRUGS (66)
  1. BELANTAMAB MAFODOTIN [Suspect]
     Active Substance: BELANTAMAB MAFODOTIN
     Indication: Plasma cell myeloma
     Dosage: 2.5 MG/KG, CYC (150 MG)
     Route: 042
     Dates: start: 20220429, end: 20220429
  2. BELANTAMAB MAFODOTIN [Suspect]
     Active Substance: BELANTAMAB MAFODOTIN
     Dosage: 2.5 MG/KG, CYC (150 MG)
     Route: 042
     Dates: start: 20220520, end: 20220520
  3. BELANTAMAB MAFODOTIN [Suspect]
     Active Substance: BELANTAMAB MAFODOTIN
     Dosage: 2.5 MG/KG, CYC (150 MG)
     Route: 042
     Dates: start: 20220610, end: 20220610
  4. BELANTAMAB MAFODOTIN [Suspect]
     Active Substance: BELANTAMAB MAFODOTIN
     Dosage: 2.5 MG/KG, CYC (150 MG)
     Route: 042
     Dates: start: 20220701, end: 20220701
  5. BELANTAMAB MAFODOTIN [Suspect]
     Active Substance: BELANTAMAB MAFODOTIN
     Dosage: 2.5 MG/KG, CYC (150 MG)
     Route: 042
     Dates: start: 20220722
  6. ETHAMSYLATE [Concomitant]
     Active Substance: ETHAMSYLATE
     Indication: Retinal haemorrhage
     Dosage: 2 G, QD,INJECTION
     Route: 042
     Dates: start: 20220811, end: 20220824
  7. ENTECAVIR [Concomitant]
     Active Substance: ENTECAVIR
     Indication: Hepatitis B
     Dosage: 0.5 MG, QD
     Route: 048
     Dates: start: 202203
  8. PROMETHAZINE HYDROCHLORIDE [Concomitant]
     Active Substance: PROMETHAZINE HYDROCHLORIDE
     Indication: Prophylaxis
     Dosage: 25 MG, SINGLE,INJECTION
     Route: 030
     Dates: start: 20220610, end: 20220610
  9. PROMETHAZINE HYDROCHLORIDE [Concomitant]
     Active Substance: PROMETHAZINE HYDROCHLORIDE
     Dosage: 25 MG, SINGLE
     Route: 030
     Dates: start: 20220701, end: 20220701
  10. PROMETHAZINE HYDROCHLORIDE [Concomitant]
     Active Substance: PROMETHAZINE HYDROCHLORIDE
     Dosage: 25 MG, QD
     Route: 030
     Dates: start: 20220722, end: 20220722
  11. PROMETHAZINE HYDROCHLORIDE [Concomitant]
     Active Substance: PROMETHAZINE HYDROCHLORIDE
     Dosage: 25 UNK
     Route: 030
     Dates: start: 20220520, end: 20220520
  12. LORATADINE [Concomitant]
     Active Substance: LORATADINE
     Indication: Prophylaxis
     Dosage: 10 MG, SINGLE
     Route: 048
     Dates: start: 20220610, end: 20220610
  13. LORATADINE [Concomitant]
     Active Substance: LORATADINE
     Dosage: 10 MG, QD
     Route: 048
     Dates: start: 20220701, end: 20220701
  14. LORATADINE [Concomitant]
     Active Substance: LORATADINE
     Dosage: 10 MG, QD
     Route: 048
     Dates: start: 20220722, end: 20220722
  15. LORATADINE [Concomitant]
     Active Substance: LORATADINE
     Dosage: 10 UNK
     Route: 048
     Dates: start: 20220520, end: 20220520
  16. DEXAMETHASONE SODIUM PHOSPHATE [Concomitant]
     Active Substance: DEXAMETHASONE SODIUM PHOSPHATE
     Indication: Prophylaxis
     Dosage: 10 MG, SINGLE,INJECTION
     Route: 042
     Dates: start: 20220610, end: 20220610
  17. DEXAMETHASONE SODIUM PHOSPHATE [Concomitant]
     Active Substance: DEXAMETHASONE SODIUM PHOSPHATE
     Dosage: 10 UNK
     Route: 042
     Dates: start: 20220701, end: 20220701
  18. DEXAMETHASONE SODIUM PHOSPHATE [Concomitant]
     Active Substance: DEXAMETHASONE SODIUM PHOSPHATE
     Dosage: 10 MG, QD
     Route: 042
     Dates: start: 20220722
  19. DEXAMETHASONE SODIUM PHOSPHATE [Concomitant]
     Active Substance: DEXAMETHASONE SODIUM PHOSPHATE
     Dosage: 10 MG, QD
     Route: 042
     Dates: start: 20220520, end: 20220520
  20. PALONOSETRON HYDROCHLORIDE [Concomitant]
     Active Substance: PALONOSETRON HYDROCHLORIDE
     Indication: Prophylaxis
     Dosage: 0.25 MG, SINGLE,INJECTION
     Route: 042
     Dates: start: 20220610, end: 20220610
  21. PALONOSETRON HYDROCHLORIDE [Concomitant]
     Active Substance: PALONOSETRON HYDROCHLORIDE
     Dosage: 0.25 MG, QD
     Route: 042
     Dates: start: 20220701, end: 20220701
  22. PALONOSETRON HYDROCHLORIDE [Concomitant]
     Active Substance: PALONOSETRON HYDROCHLORIDE
     Dosage: 0.25 MG, QD
     Route: 042
     Dates: start: 20220722, end: 20220722
  23. PALONOSETRON HYDROCHLORIDE [Concomitant]
     Active Substance: PALONOSETRON HYDROCHLORIDE
     Dosage: 0.25 UNK
     Route: 042
     Dates: start: 20220520, end: 20220520
  24. GRANULOCYTE COLONY-STIMULATING FACTOR NOS [Concomitant]
     Active Substance: GRANULOCYTE COLONY-STIMULATING FACTOR NOS
     Indication: White blood cell count increased
     Dosage: 200 UG, SINGLE,INJECTION
     Route: 058
     Dates: start: 20220609, end: 20220609
  25. GRANULOCYTE COLONY-STIMULATING FACTOR NOS [Concomitant]
     Active Substance: GRANULOCYTE COLONY-STIMULATING FACTOR NOS
     Indication: Neutrophil count increased
     Dosage: 1.5 ML
     Route: 058
     Dates: start: 20220615, end: 20220615
  26. GRANULOCYTE COLONY-STIMULATING FACTOR NOS [Concomitant]
     Active Substance: GRANULOCYTE COLONY-STIMULATING FACTOR NOS
     Dosage: 150 UG
     Route: 058
     Dates: start: 20220520, end: 20220520
  27. GRANULOCYTE COLONY-STIMULATING FACTOR NOS [Concomitant]
     Active Substance: GRANULOCYTE COLONY-STIMULATING FACTOR NOS
     Dosage: 300 UG, SINGLE
     Route: 058
     Dates: start: 20220812, end: 20220812
  28. IBANDRONATE SODIUM [Concomitant]
     Active Substance: IBANDRONATE SODIUM
     Indication: Bone disorder
     Dosage: 4 MG, SINGLE,INJECTION
     Route: 042
     Dates: start: 20220610, end: 20220610
  29. IBANDRONATE SODIUM [Concomitant]
     Active Substance: IBANDRONATE SODIUM
     Dosage: 4 MG, QD
     Route: 042
     Dates: start: 20220725, end: 20220725
  30. OMEPRAZOLE [Concomitant]
     Active Substance: OMEPRAZOLE
     Indication: Gastrointestinal disorder prophylaxis
     Dosage: 20 MG,ENTERIC COATED TABLET
     Route: 048
     Dates: start: 2022, end: 20220507
  31. OMEPRAZOLE [Concomitant]
     Active Substance: OMEPRAZOLE
     Dosage: PRN
     Route: 048
     Dates: start: 202207, end: 202207
  32. DEXTROSE [Concomitant]
     Active Substance: DEXTROSE
     Indication: Fluid replacement
     Dosage: 500 ML, QD,INJECTION
     Route: 042
     Dates: start: 20220616, end: 20220619
  33. DEXTROSE [Concomitant]
     Active Substance: DEXTROSE
     Dosage: 500 ML, SINGLE
     Route: 042
     Dates: start: 20220616, end: 20220616
  34. DEXTROSE [Concomitant]
     Active Substance: DEXTROSE
     Dosage: 500 UNK
     Route: 042
     Dates: start: 20220501, end: 20220509
  35. SODIUM CHLORIDE [Concomitant]
     Active Substance: SODIUM CHLORIDE
     Indication: Fluid replacement
     Dosage: 500 ML, QD,INJECTION
     Route: 042
     Dates: start: 20220616, end: 20220619
  36. SODIUM CHLORIDE [Concomitant]
     Active Substance: SODIUM CHLORIDE
     Dosage: 1500 ML, SINGLE INJECTION
     Route: 042
     Dates: start: 20220817, end: 20220817
  37. MOXIFLOXACIN HYDROCHLORIDE + SODIUM CHLORIDE [Concomitant]
     Indication: Infection
     Dosage: 0.4 G, SINGLE,INJECTION
     Route: 042
     Dates: start: 20220616, end: 20220616
  38. AMOXICILLIN\CLAVULANATE POTASSIUM [Concomitant]
     Active Substance: AMOXICILLIN\CLAVULANATE POTASSIUM
     Indication: Infection
     Dosage: 1.2 G Q8H,INJECTION
     Route: 042
     Dates: start: 20220616, end: 20220624
  39. OSELTAMIVIR PHOSPHATE [Concomitant]
     Active Substance: OSELTAMIVIR PHOSPHATE
     Indication: Infection
     Dosage: 75 MG, BID
     Route: 048
     Dates: start: 20220616, end: 20220620
  40. POTASSIUM CHLORIDE [Concomitant]
     Active Substance: POTASSIUM CHLORIDE
     Indication: Mineral supplementation
     Dosage: 0.5 G, TID,SUSTAINED RELEASE TABLETS
     Route: 048
     Dates: start: 20220812
  41. POTASSIUM CHLORIDE [Concomitant]
     Active Substance: POTASSIUM CHLORIDE
     Dosage: 1 G, TID,SUSTAINED RELEASE TABLETS
     Route: 048
     Dates: start: 20220620, end: 20220624
  42. POTASSIUM CHLORIDE [Concomitant]
     Active Substance: POTASSIUM CHLORIDE
     Dosage: 0.5 G, PRN SUSTAINED RELEASE TABLETS
     Route: 048
     Dates: start: 202205, end: 20220619
  43. GRANULOCYTE COLONY-STIMULATING FACTOR NOS [Concomitant]
     Active Substance: GRANULOCYTE COLONY-STIMULATING FACTOR NOS
     Indication: White blood cell count increased
     Dosage: 200 UG, SINGLE,INJECTION
     Route: 058
     Dates: start: 20220620, end: 20220620
  44. GRANULOCYTE COLONY-STIMULATING FACTOR NOS [Concomitant]
     Active Substance: GRANULOCYTE COLONY-STIMULATING FACTOR NOS
     Indication: Neutrophil count increased
     Dosage: 300 UG,QD,INJECTION
     Route: 058
     Dates: start: 20220506, end: 20220506
  45. GRANULOCYTE COLONY-STIMULATING FACTOR NOS [Concomitant]
     Active Substance: GRANULOCYTE COLONY-STIMULATING FACTOR NOS
     Dosage: 300 UG,QD,INJECTION
     Route: 058
     Dates: start: 20220824, end: 20220824
  46. QU TAN ZHI KE [Concomitant]
     Indication: Cough
     Dosage: 1.8 G, BID
     Route: 048
     Dates: start: 20220621, end: 20220624
  47. THROMBOPOIETIN [Concomitant]
     Active Substance: THROMBOPOIETIN
     Indication: Platelet count increased
     Dosage: 15000 UNITS, QD,INJECTION
     Route: 058
     Dates: start: 20220620, end: 20220624
  48. THROMBOPOIETIN [Concomitant]
     Active Substance: THROMBOPOIETIN
     Dosage: 15000 UNITS
     Route: 058
     Dates: start: 20220507, end: 20220510
  49. IBUPROFEN [Concomitant]
     Active Substance: IBUPROFEN
     Indication: Pyrexia
     Dosage: 3 GTT, TID,SUSPENSION
     Route: 048
     Dates: start: 20220616, end: 20220619
  50. FLURBIPROFEN CATAPLASMS [Concomitant]
     Indication: Pain
     Dosage: PATCH
     Route: 062
     Dates: start: 202207, end: 202207
  51. LACTULOSE [Concomitant]
     Active Substance: LACTULOSE
     Indication: Constipation
     Dosage: UNK, QD,ORAL SOLUTION
     Route: 048
     Dates: start: 20220724, end: 20220724
  52. THYMALFASIN [Concomitant]
     Active Substance: THYMALFASIN
     Indication: Immune system disorder
     Dosage: 1.6 MG, QD,INJECTION
     Route: 058
     Dates: start: 20220725, end: 20220725
  53. THYMALFASIN [Concomitant]
     Active Substance: THYMALFASIN
     Dosage: 1.6 MG, Z 2 TIMES PER WEEK,INJECTION
     Route: 058
     Dates: start: 20220815, end: 20220822
  54. HEMOCOAGULASE [Concomitant]
     Indication: Retinal haemorrhage
     Dosage: 1000 IU, QD
     Route: 030
     Dates: start: 20220822, end: 20220824
  55. HEMOCOAGULASE [Concomitant]
     Indication: Haemorrhage
     Dosage: 1000 IU, QD,TRANSMUCOSAL
     Dates: start: 20220812, end: 20220817
  56. POTASSIUM CHLORIDE [Concomitant]
     Active Substance: POTASSIUM CHLORIDE
     Indication: Mineral supplementation
     Dosage: 1.5 G, SINGLE
     Route: 042
     Dates: start: 20220812, end: 20220812
  57. POTASSIUM CHLORIDE [Concomitant]
     Active Substance: POTASSIUM CHLORIDE
     Dosage: 1.5 G, SINGLE
     Route: 042
     Dates: start: 20220812, end: 20220812
  58. POTASSIUM CHLORIDE [Concomitant]
     Active Substance: POTASSIUM CHLORIDE
     Dosage: 1.5 G, SINGLE
     Route: 042
     Dates: start: 20220817, end: 20220817
  59. BICYCLOL [Concomitant]
     Active Substance: BICYCLOL
     Indication: Prophylaxis
     Dosage: 25 MG, TID
     Route: 048
     Dates: start: 20220812, end: 202208
  60. GENTAMICIN SULFATE [Concomitant]
     Active Substance: GENTAMICIN SULFATE
     Indication: Antidiarrhoeal supportive care
     Dosage: 80000 IU, SINGLE
     Route: 048
     Dates: start: 20220817, end: 20220817
  61. GENTAMICIN SULFATE [Concomitant]
     Active Substance: GENTAMICIN SULFATE
     Dosage: 80000 IU, BID
     Route: 048
     Dates: start: 20220819, end: 20220820
  62. GENTAMICIN SULFATE [Concomitant]
     Active Substance: GENTAMICIN SULFATE
     Dosage: 80000 IU, SINGLE
     Route: 048
     Dates: start: 20220815, end: 20220815
  63. MONTMORILLONITE [Concomitant]
     Active Substance: MONTMORILLONITE
     Indication: Diarrhoea
     Dosage: 1 DF, PRN (PACKAGE)
     Route: 048
     Dates: start: 2012
  64. CAFFEIC ACID [Concomitant]
     Active Substance: CAFFEIC ACID
     Indication: Platelet count increased
     Dosage: 3 DF, PRN
     Route: 048
     Dates: start: 202205
  65. SHENG XUE BAO HE JI [Concomitant]
     Indication: Prophylaxis
     Dosage: 10 ML, TID
     Route: 048
  66. LIVE COMBINED BACILLUS SUBTILIS AND ENTEROCOCCUS FAECIUM ENTERIC-COATE [Concomitant]
     Indication: Diarrhoea
     Dosage: 0.25 G, TID
     Route: 048
     Dates: start: 20220817, end: 202208

REACTIONS (1)
  - Retinal haemorrhage [Recovered/Resolved]

NARRATIVE: CASE EVENT DATE: 20220811
